FAERS Safety Report 25706321 (Version 4)
Quarter: 2025Q4

REPORT INFORMATION
  Report Type: Spontaneous
  Country: EU (occurrence: EU)
  Receive Date: 20250820
  Receipt Date: 20251205
  Transmission Date: 20260118
  Serious: Yes (Hospitalization, Other)
  Sender: PFIZER
  Company Number: EU-PFIZER INC-PV202500100402

PATIENT
  Age: 74 Year
  Sex: Male

DRUGS (1)
  1. DOXYCYCLINE [Suspect]
     Active Substance: DOXYCYCLINE
     Indication: Osteomyelitis chronic
     Dosage: UNK

REACTIONS (3)
  - Oesophageal rupture [Recovering/Resolving]
  - Pneumothorax [Recovering/Resolving]
  - Oesophagitis [Recovering/Resolving]
